FAERS Safety Report 9164507 (Version 2)
Quarter: 2013Q2

REPORT INFORMATION
  Report Type: Report from Study
  Country: JP (occurrence: JP)
  Receive Date: 20130315
  Receipt Date: 20130425
  Transmission Date: 20140414
  Serious: Yes (Death, Other)
  Sender: FDA-Public Use
  Company Number: PHHY2013JP025011

PATIENT
  Sex: Female

DRUGS (4)
  1. EXELON [Suspect]
     Indication: DEMENTIA ALZHEIMER^S TYPE
     Dosage: 4.5 MG DAILY
     Route: 062
     Dates: start: 20120124, end: 20120220
  2. EXELON [Suspect]
     Dosage: 9 MG DAILY
     Route: 062
     Dates: start: 20120221, end: 20120320
  3. EXELON [Suspect]
     Dosage: 13.5 MG DAILY
     Route: 062
     Dates: start: 20120321, end: 20120417
  4. EXELON [Suspect]
     Dosage: 18 MG DAILY
     Route: 062
     Dates: start: 20120418, end: 20120528

REACTIONS (4)
  - Marasmus [Fatal]
  - Cardiac arrest [Unknown]
  - Respiratory arrest [Unknown]
  - Mydriasis [Unknown]
